FAERS Safety Report 19374925 (Version 1)
Quarter: 2021Q2

REPORT INFORMATION
  Report Type: Report from Study
  Country: CN (occurrence: CN)
  Receive Date: 20210604
  Receipt Date: 20210604
  Transmission Date: 20210717
  Serious: Yes (Hospitalization, Other)
  Sender: FDA-Public Use
  Company Number: NVSC2021CN121264

PATIENT
  Age: 67 Year
  Sex: Female
  Weight: 43 kg

DRUGS (4)
  1. CAPECITABINE. [Suspect]
     Active Substance: CAPECITABINE
     Indication: HER2 POSITIVE BREAST CANCER
     Dosage: 500 MG, BID
     Route: 048
     Dates: start: 20210503, end: 20210518
  2. TYKERB [Suspect]
     Active Substance: LAPATINIB DITOSYLATE
     Indication: HER2 POSITIVE BREAST CANCER
     Dosage: TABLET, 1250 MG, QD
     Route: 048
     Dates: start: 20210503, end: 20210521
  3. CAPECITABINE. [Suspect]
     Active Substance: CAPECITABINE
     Dosage: 450 MG, BID
     Route: 048
     Dates: start: 20210503, end: 20210518
  4. INSULIN [Concomitant]
     Active Substance: INSULIN NOS
     Indication: BLOOD GLUCOSE DECREASED
     Dosage: 61U ,ONE TIME
     Route: 041
     Dates: start: 20210524, end: 20210524

REACTIONS (5)
  - Neutrophil count decreased [Not Recovered/Not Resolved]
  - Hypokalaemia [Not Recovered/Not Resolved]
  - White blood cell count decreased [Not Recovered/Not Resolved]
  - Hyponatraemia [Not Recovered/Not Resolved]
  - Anaemia [Not Recovered/Not Resolved]

NARRATIVE: CASE EVENT DATE: 20210524
